FAERS Safety Report 4395728-6 (Version None)
Quarter: 2004Q3

REPORT INFORMATION
  Report Type: 
  Country: None (occurrence: None)
  Receive Date: 20040707
  Receipt Date: 20040625
  Transmission Date: 20050211
  Serious: Yes (Life-Threatening, Other)
  Sender: FDA-Public Use
  Company Number: DE-JNJFOC-20040205812

PATIENT
  Age: 43 Year
  Sex: Male
  Weight: 90 kg

DRUGS (6)
  1. REMICADE [Suspect]
     Indication: CROHN'S DISEASE
     Dosage: 250 MG, INTRAVENOUS
     Route: 042
     Dates: start: 20010802, end: 20010930
  2. AZATHIOPRINE [Concomitant]
  3. CHOLESTYRAMINE (COLESTYRAMINE) [Concomitant]
  4. LOPERAMIDE HCL [Concomitant]
  5. CIPROFLOXACIN [Concomitant]
  6. VITAMIN B12 [Concomitant]

REACTIONS (1)
  - NON-HODGKIN'S LYMPHOMA [None]
